FAERS Safety Report 4313917-3 (Version None)
Quarter: 2004Q1

REPORT INFORMATION
  Report Type: 
  Country: None (occurrence: None)
  Receive Date: 20040305
  Receipt Date: 20040128
  Transmission Date: 20041129
  Serious: Yes (Hospitalization)
  Sender: FDA-Public Use
  Company Number: 7355

PATIENT
  Age: 71 Year
  Sex: Male

DRUGS (4)
  1. METHOTREXATE [Suspect]
     Indication: RHEUMATOID ARTHRITIS
     Dosage: 12.5 MG WEEKLY PO
     Route: 048
     Dates: start: 20000515
  2. ENBREL [Suspect]
     Indication: RHEUMATOID ARTHRITIS
     Dosage: 25 MG 2/WK SC
     Route: 058
     Dates: start: 20031118, end: 20031121
  3. ACTONEL [Suspect]
     Dosage: PO
     Route: 048
     Dates: start: 20031031
  4. PREDNISONE [Suspect]
     Indication: RHEUMATOID ARTHRITIS
     Dosage: 5 MG PO
     Route: 048
     Dates: start: 20000515

REACTIONS (3)
  - DYSPNOEA [None]
  - EPILEPSY [None]
  - GRAND MAL CONVULSION [None]
